FAERS Safety Report 11574750 (Version 1)
Quarter: 2015Q3

REPORT INFORMATION
  Report Type: Spontaneous
  Country: US (occurrence: US)
  Receive Date: 20150930
  Receipt Date: 20150930
  Transmission Date: 20151125
  Serious: No
  Sender: FDA-Public Use
  Company Number: US-PFIZER INC-2015312004

PATIENT
  Age: 39 Year
  Weight: 54 kg

DRUGS (1)
  1. ADVIL ALLERGY SINUS [Suspect]
     Active Substance: CHLORPHENIRAMINE MALEATE\IBUPROFEN\PSEUDOEPHEDRINE HYDROCHLORIDE
     Indication: HYPERSENSITIVITY
     Dosage: 200 MG, 1X/DAY
     Dates: start: 20150902, end: 20150916

REACTIONS (2)
  - Abdominal discomfort [Unknown]
  - Nausea [Recovered/Resolved]
